FAERS Safety Report 5684121-1 (Version None)
Quarter: 2008Q1

REPORT INFORMATION
  Report Type: 
  Country: None (occurrence: None)
  Receive Date: 20080328
  Receipt Date: 20070628
  Transmission Date: 20080703
  Serious: No
  Sender: FDA-Public Use
  Company Number: US-AMGEN-KDL231749

PATIENT
  Sex: Male

DRUGS (1)
  1. NEULASTA [Suspect]
     Indication: CHEMOTHERAPY
     Dates: start: 20060801

REACTIONS (2)
  - CARDIAC DISORDER [None]
  - FATIGUE [None]
